FAERS Safety Report 12269919 (Version 1)
Quarter: 2016Q2

REPORT INFORMATION
  Report Type: Spontaneous
  Country: US (occurrence: US)
  Receive Date: 20160415
  Receipt Date: 20160415
  Transmission Date: 20160815
  Serious: No
  Sender: FDA-Public Use
  Company Number: US-ASTRAZENECA-2016SE36696

PATIENT
  Sex: Female

DRUGS (1)
  1. PRILOSEC OTC [Suspect]
     Active Substance: OMEPRAZOLE MAGNESIUM
     Indication: DYSPEPSIA
     Route: 048

REACTIONS (6)
  - Dyspepsia [Unknown]
  - Condition aggravated [Unknown]
  - Dysgeusia [Unknown]
  - Product taste abnormal [Unknown]
  - Intentional product use issue [Unknown]
  - Drug ineffective [Unknown]
